FAERS Safety Report 25867005 (Version 2)
Quarter: 2025Q4

REPORT INFORMATION
  Report Type: Spontaneous
  Country: US (occurrence: US)
  Receive Date: 20251001
  Receipt Date: 20251024
  Transmission Date: 20260117
  Serious: No
  Sender: IPSEN BIOPHARMACEUTICALS, INC.
  Company Number: US-IPSEN Group, Research and Development-2025-23343

PATIENT
  Sex: Male

DRUGS (2)
  1. SOHONOS [Suspect]
     Active Substance: PALOVAROTENE
     Indication: Bone disorder
     Route: 048
  2. SOHONOS [Suspect]
     Active Substance: PALOVAROTENE
     Indication: Off label use

REACTIONS (2)
  - Condition aggravated [Unknown]
  - Off label use [Unknown]
